FAERS Safety Report 8134812-8 (Version None)
Quarter: 2012Q1

REPORT INFORMATION
  Report Type: 
  Country: None (occurrence: None)
  Receive Date: 20120214
  Receipt Date: 20120209
  Transmission Date: 20120608
  Serious: Yes (Disabling)
  Sender: FDA-Public Use
  Company Number: GB-TEVA-321639ISR

PATIENT
  Age: 83 Year
  Sex: Male

DRUGS (7)
  1. AMIODARONE HCL [Suspect]
     Dosage: 200MG REDUCED TO 100MG
     Route: 048
  2. TOLTERODINE TARTRATE [Concomitant]
  3. PERINDOPRIL [Concomitant]
  4. SIMVASTATIN [Concomitant]
  5. ALLOPURINOL [Concomitant]
  6. ASPIRIN [Concomitant]
  7. AMIODARONE HCL [Suspect]
     Dosage: LOADING DOSE
     Route: 042
     Dates: start: 20120120

REACTIONS (3)
  - DELUSION [None]
  - PSYCHOTIC DISORDER [None]
  - MEMORY IMPAIRMENT [None]
